FAERS Safety Report 10100193 (Version 2)
Quarter: 2014Q2

REPORT INFORMATION
  Report Type: Spontaneous
  Country: US (occurrence: US)
  Receive Date: 20140423
  Receipt Date: 20140423
  Transmission Date: 20141212
  Serious: Yes (Other)
  Sender: FDA-Public Use
  Company Number: US-GILEAD-2013-0075122

PATIENT
  Sex: Female

DRUGS (2)
  1. LETAIRIS [Suspect]
     Indication: PULMONARY HYPERTENSION
     Dosage: 5 MG, QD
     Dates: start: 20130423, end: 201305
  2. ADCIRCA [Concomitant]

REACTIONS (5)
  - Hypersensitivity [Unknown]
  - Skin burning sensation [Unknown]
  - Erythema [Unknown]
  - Dyspnoea [Unknown]
  - Eye swelling [Unknown]
